FAERS Safety Report 5387263-3 (Version None)
Quarter: 2007Q3

REPORT INFORMATION
  Report Type: 
  Country: None (occurrence: None)
  Receive Date: 20070706
  Receipt Date: 20070515
  Transmission Date: 20080115
  Serious: Yes (Other)
  Sender: FDA-Public Use
  Company Number: PHEH2007US06852

PATIENT
  Age: 8 Year
  Sex: Male

DRUGS (3)
  1. TEKTURNA [Suspect]
     Dosage: 150 MG, QD
     Dates: start: 20070430, end: 20070501
  2. DOXEPIN HCL [Concomitant]
  3. ATENOLOL [Concomitant]

REACTIONS (3)
  - ANGIOEDEMA [None]
  - LIP SWELLING [None]
  - URTICARIA [None]
